FAERS Safety Report 14685656 (Version 1)
Quarter: 2018Q1

REPORT INFORMATION
  Report Type: Spontaneous
  Country: US (occurrence: US)
  Receive Date: 20180327
  Receipt Date: 20180327
  Transmission Date: 20180509
  Serious: Yes (Other)
  Sender: FDA-Public Use
  Company Number: US-PFIZER INC-2018120427

PATIENT
  Age: 33 Year
  Sex: Male

DRUGS (1)
  1. SOMAVERT [Suspect]
     Active Substance: PEGVISOMANT
     Dosage: 15 MG, WEEKLY

REACTIONS (6)
  - Drug dose omission [Unknown]
  - Abdominal distension [Recovering/Resolving]
  - Pain in extremity [Unknown]
  - Constipation [Not Recovered/Not Resolved]
  - Back pain [Unknown]
  - Urinary retention [Recovering/Resolving]
